FAERS Safety Report 4863872-2 (Version None)
Quarter: 2005Q4

REPORT INFORMATION
  Report Type: 
  Country: None (occurrence: None)
  Receive Date: 20051222
  Receipt Date: 20051028
  Transmission Date: 20060501
  Serious: No
  Sender: FDA-Public Use
  Company Number: US-GLAXOSMITHKLINE-A0580109A

PATIENT
  Age: 91 Year
  Sex: Female

DRUGS (4)
  1. FLONASE [Suspect]
     Indication: RHINITIS
     Dosage: 1SPR PER DAY
     Route: 045
     Dates: start: 20050912
  2. NORVASC [Concomitant]
  3. ASPIRIN [Concomitant]
  4. PEPCID AC [Concomitant]

REACTIONS (3)
  - ASTHENIA [None]
  - BALANCE DISORDER [None]
  - MALAISE [None]
